FAERS Safety Report 8546629-0 (Version None)
Quarter: 2012Q3

REPORT INFORMATION
  Report Type: 
  Country: None (occurrence: None)
  Receive Date: 20120727
  Receipt Date: 20120103
  Transmission Date: 20120928
  Serious: No
  Sender: FDA-Public Use
  Company Number: US-ASTRAZENECA-2012SE00595

PATIENT
  Age: 52 Year
  Sex: Male
  Weight: 145.6 kg

DRUGS (8)
  1. LASIX [Concomitant]
  2. PROZAC [Concomitant]
  3. COUMADIN [Concomitant]
  4. PREVACID [Concomitant]
  5. SEROQUEL [Suspect]
     Indication: DEPRESSION
     Route: 048
     Dates: start: 20090101
  6. SEROQUEL [Suspect]
     Route: 048
     Dates: start: 20090101
  7. KOREG [Concomitant]
  8. POTASSIUM CHLORIDE [Concomitant]

REACTIONS (3)
  - DEPRESSION [None]
  - ADVERSE EVENT [None]
  - DRUG DOSE OMISSION [None]
